APPROVED DRUG PRODUCT: METOCLOPRAMIDE HYDROCHLORIDE
Active Ingredient: METOCLOPRAMIDE HYDROCHLORIDE
Strength: EQ 5MG BASE/5ML
Dosage Form/Route: SOLUTION;ORAL
Application: A073680 | Product #001
Applicant: CHARTWELL MOLECULAR HOLDINGS LLC
Approved: Oct 27, 1992 | RLD: No | RS: No | Type: DISCN